FAERS Safety Report 4598029-6 (Version None)
Quarter: 2005Q1

REPORT INFORMATION
  Report Type: 
  Country: None (occurrence: None)
  Receive Date: 20050204
  Receipt Date: 20031105
  Transmission Date: 20050727
  Serious: Yes (Other)
  Sender: FDA-Public Use
  Company Number: PHEH2003US10253

PATIENT

DRUGS (4)
  1. CLOZARIL [Suspect]
     Dosage: ORAL
     Route: 048
  2. SEROQUEL [Concomitant]
  3. RISPERDAL [Concomitant]
  4. DEPAKOTE [Concomitant]

REACTIONS (1)
  - HYPERTENSION [None]
